FAERS Safety Report 18160552 (Version 1)
Quarter: 2020Q3

REPORT INFORMATION
  Report Type: Spontaneous
  Country: FR (occurrence: FR)
  Receive Date: 20200818
  Receipt Date: 20200818
  Transmission Date: 20201103
  Serious: Yes (Other)
  Sender: FDA-Public Use
  Company Number: FR-CADILA HEALTHCARE LIMITED-FR-ZYDUS-054549

PATIENT

DRUGS (6)
  1. SAXAGLIPTIN [Concomitant]
     Active Substance: SAXAGLIPTIN
     Indication: DIABETES MELLITUS
     Dosage: UNK
  2. GLICLAZIDE [Concomitant]
     Active Substance: GLICLAZIDE
     Indication: DIABETES MELLITUS
     Dosage: UNK
  3. INSULIN [Concomitant]
     Active Substance: INSULIN NOS
     Indication: DIABETES MELLITUS
     Dosage: UNK
  4. LETROZOLE. [Concomitant]
     Active Substance: LETROZOLE
     Indication: HORMONE RECEPTOR POSITIVE BREAST CANCER
     Dosage: UNK
  5. METFORMINE [Suspect]
     Active Substance: METFORMIN HYDROCHLORIDE
     Indication: DIABETES MELLITUS
     Dosage: 1000 MILLIGRAM, TID
     Route: 048
  6. ABEMACICLIB [Suspect]
     Active Substance: ABEMACICLIB
     Indication: HORMONE RECEPTOR POSITIVE BREAST CANCER
     Dosage: 150 MILLIGRAM, BID
     Route: 065

REACTIONS (2)
  - Drug interaction [Unknown]
  - Acute kidney injury [Recovered/Resolved]
